FAERS Safety Report 11328190 (Version 4)
Quarter: 2015Q3

REPORT INFORMATION
  Report Type: Report from Study
  Country: MX (occurrence: MX)
  Receive Date: 20150731
  Receipt Date: 20150914
  Transmission Date: 20151125
  Serious: Yes (Death, Life-Threatening, Hospitalization, Disabling)
  Sender: FDA-Public Use
  Company Number: MX-AMGEN-MEXCT2015077394

PATIENT
  Age: 22 Year
  Sex: Male
  Weight: 60 kg

DRUGS (6)
  1. BLINATUMOMAB [Suspect]
     Active Substance: BLINATUMOMAB
     Indication: ACUTE LYMPHOCYTIC LEUKAEMIA
     Dosage: 28 MCG, UNK
     Route: 041
     Dates: start: 20150717, end: 20150727
  2. PARACETAMOL [Concomitant]
     Active Substance: ACETAMINOPHEN
     Dosage: 500 MG, UNK
     Route: 042
     Dates: start: 20150616, end: 20150727
  3. DEXAMETHASONE. [Concomitant]
     Active Substance: DEXAMETHASONE
     Dosage: 4 MG - 20 UNK
     Route: 042
     Dates: start: 20150713, end: 20150717
  4. METHOTREXATE [Concomitant]
     Active Substance: METHOTREXATE
     Dosage: 12 MG, UNK
     Route: 037
     Dates: start: 20150713, end: 20150713
  5. CITARABIN [Concomitant]
     Dosage: 40 MG, UNK
     Route: 037
     Dates: start: 20150713, end: 20150713
  6. IMIPENEM [Concomitant]
     Active Substance: IMIPENEM
     Dosage: 500 MG, UNK
     Route: 042
     Dates: start: 20150616, end: 20150727

REACTIONS (1)
  - Respiratory failure [Fatal]

NARRATIVE: CASE EVENT DATE: 20150727
